FAERS Safety Report 8233388-4 (Version None)
Quarter: 2012Q1

REPORT INFORMATION
  Report Type: 
  Country: None (occurrence: None)
  Receive Date: 20120326
  Receipt Date: 20120320
  Transmission Date: 20120608
  Serious: Yes (Other)
  Sender: FDA-Public Use
  Company Number: BR-SANOFI-AVENTIS-2012SA019558

PATIENT
  Age: 74 Year
  Sex: Female
  Weight: 78 kg

DRUGS (3)
  1. ATACAND [Concomitant]
     Route: 048
     Dates: start: 20100101
  2. AMARYL [Suspect]
     Indication: TYPE 2 DIABETES MELLITUS
     Route: 048
     Dates: start: 20080101
  3. GALVUS [Concomitant]
     Indication: TYPE 2 DIABETES MELLITUS
     Route: 048
     Dates: start: 20080101

REACTIONS (2)
  - NOSOCOMIAL INFECTION [None]
  - ARTHROPATHY [None]
